FAERS Safety Report 19180907 (Version 1)
Quarter: 2021Q2

REPORT INFORMATION
  Report Type: Spontaneous
  Country: JP (occurrence: JP)
  Receive Date: 20210426
  Receipt Date: 20210426
  Transmission Date: 20210717
  Serious: Yes (Other)
  Sender: FDA-Public Use
  Company Number: JP-TEVA-2021-JP-002008J

PATIENT
  Age: 86 Year
  Sex: Female

DRUGS (3)
  1. PREDNISOLONE TABLETS 5 MG. [Suspect]
     Active Substance: PREDNISOLONE
     Dosage: 1.5 MILLIGRAM DAILY;
     Route: 048
  2. PREDNISOLONE TABLETS 5 MG. [Suspect]
     Active Substance: PREDNISOLONE
     Indication: PRODUCT USED FOR UNKNOWN INDICATION
     Dosage: 1.5 MILLIGRAM DAILY;
     Route: 048
  3. PREDNISOLONE TABLETS 5 MG. [Suspect]
     Active Substance: PREDNISOLONE
     Dosage: 7.5 MILLIGRAM DAILY;
     Route: 048

REACTIONS (1)
  - Steroid withdrawal syndrome [Unknown]
